FAERS Safety Report 7393024-6 (Version None)
Quarter: 2011Q2

REPORT INFORMATION
  Report Type: 
  Country: None (occurrence: None)
  Receive Date: 20110404
  Receipt Date: 20110321
  Transmission Date: 20111010
  Serious: Yes (Hospitalization, Other)
  Sender: FDA-Public Use
  Company Number: US-ELI_LILLY_AND_COMPANY-US201009000510

PATIENT
  Sex: Female

DRUGS (15)
  1. PLAQUENIL [Concomitant]
     Dosage: 200 MG, UNK
  2. FORTEO [Suspect]
     Indication: OSTEOPOROSIS
     Dosage: 20 UG, DAILY (1/D)
     Route: 058
     Dates: start: 20100830
  3. ASCORBIC ACID [Concomitant]
     Dosage: 500 MG, UNK
     Route: 065
  4. VITAMIN D [Concomitant]
     Dosage: 2000 IU, OTHER
  5. ANESTHETICS, LOCAL [Concomitant]
     Route: 008
  6. ASPIRIN [Concomitant]
     Dosage: .5 DF, UNK
  7. AMLODIPINE BESYLATE [Concomitant]
     Dosage: 5 MG, UNK
  8. MULTI-VITAMIN [Concomitant]
     Route: 065
  9. VITAMIN B COMPLEX CAP [Concomitant]
     Route: 065
  10. TYLENOL                                 /SCH/ [Concomitant]
     Dosage: UNK, PRN
  11. LOVAZA [Concomitant]
     Route: 065
  12. CALCIUM [Concomitant]
     Route: 065
  13. VITAMIN E [Concomitant]
     Dosage: 400 MG, QOD
  14. FORTEO [Suspect]
     Dosage: 20 UG, QD
     Route: 058
  15. CELEBREX [Concomitant]
     Dosage: 200 MG, UNK

REACTIONS (7)
  - FATIGUE [None]
  - MALAISE [None]
  - ASTHENIA [None]
  - TREMOR [None]
  - DIZZINESS [None]
  - NAUSEA [None]
  - LUNG ADENOCARCINOMA [None]
